FAERS Safety Report 6918103-6 (Version None)
Quarter: 2010Q3

REPORT INFORMATION
  Report Type: 
  Country: None (occurrence: None)
  Receive Date: 20100806
  Receipt Date: 20100728
  Transmission Date: 20110219
  Serious: Yes (Hospitalization)
  Sender: FDA-Public Use
  Company Number: 656716

PATIENT
  Age: 55 Year
  Sex: Male

DRUGS (5)
  1. PACLITAXEL [Suspect]
     Indication: METASTATIC NEOPLASM
     Dosage: 300 MG MILLIGRAM(S), INTRAVENOUS
     Route: 042
     Dates: start: 20100625, end: 20100625
  2. DEXAMETHASONE [Concomitant]
  3. ONDANSETRON [Concomitant]
  4. DEXCHLORPHENIRAMINE MALEATE [Concomitant]
  5. RANITIDINE [Concomitant]

REACTIONS (2)
  - BACK PAIN [None]
  - FLUSHING [None]
